FAERS Safety Report 25940730 (Version 1)
Quarter: 2025Q4

REPORT INFORMATION
  Report Type: Spontaneous
  Country: US (occurrence: None)
  Receive Date: 20251017
  Receipt Date: 20251017
  Transmission Date: 20260117
  Serious: Yes (Hospitalization)
  Sender: FDA-CTU
  Company Number: None

PATIENT
  Age: 41 Year
  Sex: Male

DRUGS (11)
  1. TACROLIMUS [Suspect]
     Active Substance: TACROLIMUS
     Indication: Lung transplant
     Dosage: FREQUENCY : TWICE A DAY;?
     Route: 048
     Dates: start: 20240625
  2. ASPIRIN [Concomitant]
     Active Substance: ASPIRIN
  3. METHADONE [Concomitant]
     Active Substance: METHADONE HYDROCHLORIDE
  4. CLONAZEPAM [Concomitant]
     Active Substance: CLONAZEPAM
  5. PREGABALIN [Concomitant]
     Active Substance: PREGABALIN
  6. PRAVASTATIN [Concomitant]
     Active Substance: PRAVASTATIN
  7. SULFAMETHOXAZOLE\TRIMETHOPRIM [Concomitant]
     Active Substance: SULFAMETHOXAZOLE\TRIMETHOPRIM
  8. CLOPIDOGREL [Concomitant]
     Active Substance: CLOPIDOGREL BISULFATE
  9. VALGANCICLOVIR [Concomitant]
     Active Substance: VALGANCICLOVIR
  10. MYCOPHENOLIC ACID [Concomitant]
     Active Substance: MYCOPHENOLIC ACID
  11. FORTEO [Concomitant]
     Active Substance: TERIPARATIDE

REACTIONS (1)
  - Lung transplant rejection [None]

NARRATIVE: CASE EVENT DATE: 20251001
